FAERS Safety Report 9683611 (Version 1)
Quarter: 2013Q4

REPORT INFORMATION
  Report Type: Spontaneous
  Country: US (occurrence: US)
  Receive Date: 20131112
  Receipt Date: 20131112
  Transmission Date: 20140711
  Serious: Yes (Hospitalization, Other)
  Sender: FDA-Public Use
  Company Number: US-PFIZER INC-2013318598

PATIENT
  Age: 54 Year
  Sex: Male
  Weight: 220 kg

DRUGS (1)
  1. VIAGRA [Suspect]
     Indication: ERECTILE DYSFUNCTION
     Dosage: UNK, AS NEEDED
     Route: 048
     Dates: start: 2011, end: 201311

REACTIONS (4)
  - Optic neuritis [Unknown]
  - Cardiac failure [Unknown]
  - Respiratory failure [Unknown]
  - Haemoglobin decreased [Unknown]
